FAERS Safety Report 9787647 (Version 2)
Quarter: 2014Q2

REPORT INFORMATION
  Report Type: Spontaneous
  Country: US (occurrence: None)
  Receive Date: 20131226
  Receipt Date: 20140616
  Transmission Date: 20141212
  Serious: Yes (Other)
  Sender: FDA-Public Use
  Company Number: 2013-US-004628

PATIENT
  Age: 66 Year
  Sex: Female

DRUGS (1)
  1. XYREM [Suspect]
     Indication: NARCOLEPSY
     Route: 048
     Dates: start: 200803, end: 2009

REACTIONS (6)
  - Sleep apnoea syndrome [None]
  - Depression [None]
  - Hypercholesterolaemia [None]
  - Osteoporosis [None]
  - Attention deficit/hyperactivity disorder [None]
  - Somnolence [None]
